FAERS Safety Report 9777699 (Version 9)
Quarter: 2014Q3

REPORT INFORMATION
  Report Type: Report from Study
  Country: CA (occurrence: CA)
  Receive Date: 20131223
  Receipt Date: 20140916
  Transmission Date: 20150326
  Serious: Yes (Hospitalization, Other)
  Sender: FDA-Public Use
  Company Number: CA-ROCHE-1318002

PATIENT
  Age: 56 Year
  Sex: Female
  Weight: 68.5 kg

DRUGS (7)
  1. RANITIDINE [Concomitant]
     Active Substance: RANITIDINE\RANITIDINE HYDROCHLORIDE
     Route: 065
     Dates: start: 2010
  2. PERJETA [Concomitant]
     Active Substance: PERTUZUMAB
     Route: 042
     Dates: start: 20140611, end: 20140814
  3. HERCEPTIN [Suspect]
     Active Substance: TRASTUZUMAB
     Indication: HER-2 POSITIVE BREAST CANCER
     Route: 042
     Dates: start: 201104, end: 20140814
  4. KADCYLA [Suspect]
     Active Substance: ADO-TRASTUZUMAB EMTANSINE
     Indication: HER-2 POSITIVE BREAST CANCER
     Route: 042
     Dates: start: 20131119, end: 20140429
  5. XELODA [Suspect]
     Active Substance: CAPECITABINE
     Indication: HER-2 POSITIVE BREAST CANCER
     Route: 048
     Dates: start: 201305, end: 201310
  6. TYKERB [Concomitant]
     Active Substance: LAPATINIB DITOSYLATE
     Indication: BREAST CANCER
     Route: 065
     Dates: start: 201305, end: 201310
  7. TAXOL [Concomitant]
     Active Substance: PACLITAXEL
     Route: 065
     Dates: start: 201211, end: 201304

REACTIONS (18)
  - Platelet count increased [Unknown]
  - Swelling [Unknown]
  - Haemorrhage [Unknown]
  - Liver function test abnormal [Not Recovered/Not Resolved]
  - Lymphocyte count decreased [Unknown]
  - Hepatotoxicity [Not Recovered/Not Resolved]
  - Metastases to bone [Unknown]
  - Red blood cell count decreased [Unknown]
  - Granulocytes abnormal [Unknown]
  - Thrombosis [Unknown]
  - Disease progression [Not Recovered/Not Resolved]
  - Drug intolerance [Not Recovered/Not Resolved]
  - Pulmonary oedema [Unknown]
  - Inflammation [Recovering/Resolving]
  - Hepatitis [Unknown]
  - Cough [Not Recovered/Not Resolved]
  - Weight decreased [Not Recovered/Not Resolved]
  - Blood cholesterol increased [Unknown]

NARRATIVE: CASE EVENT DATE: 2012
